FAERS Safety Report 6170426-7 (Version None)
Quarter: 2009Q2

REPORT INFORMATION
  Report Type: 
  Country: None (occurrence: None)
  Receive Date: 20090428
  Receipt Date: 20090421
  Transmission Date: 20091009
  Serious: Yes (Hospitalization, Other)
  Sender: FDA-Public Use
  Company Number: US-ELI_LILLY_AND_COMPANY-US200904004583

PATIENT
  Sex: Female

DRUGS (3)
  1. HUMALOG [Suspect]
     Dosage: UNK, UNK
     Route: 058
  2. ATENOLOL [Concomitant]
  3. DOXYCYCLINE [Concomitant]

REACTIONS (7)
  - BACK PAIN [None]
  - HYPERTENSION [None]
  - INSULIN RESISTANCE [None]
  - INTERVERTEBRAL DISC PROTRUSION [None]
  - PERIPHERAL ARTERIAL OCCLUSIVE DISEASE [None]
  - POST PROCEDURAL COMPLICATION [None]
  - PROTEIN URINE PRESENT [None]
